FAERS Safety Report 7791381-X (Version None)
Quarter: 2011Q4

REPORT INFORMATION
  Report Type: 
  Country: None (occurrence: None)
  Receive Date: 20111003
  Receipt Date: 20110920
  Transmission Date: 20120403
  Serious: Yes (Life-Threatening, Hospitalization)
  Sender: FDA-Public Use
  Company Number: FR-ELI_LILLY_AND_COMPANY-FR201109005332

PATIENT
  Sex: Male

DRUGS (5)
  1. CYMBALTA [Suspect]
     Dosage: UNK
     Dates: end: 20110723
  2. DEPAKOTE [Concomitant]
     Dosage: 250 MG, BID
     Route: 048
     Dates: start: 20110718, end: 20110723
  3. METHADONE HCL [Concomitant]
  4. NOCTRAN 10 [Concomitant]
     Dosage: 15 MG, QD
     Route: 048
     Dates: end: 20110723
  5. VALIUM [Concomitant]
     Dosage: 20 MG, TID
     Route: 048
     Dates: end: 20110723

REACTIONS (4)
  - SEROTONIN SYNDROME [None]
  - TOXICITY TO VARIOUS AGENTS [None]
  - COMA [None]
  - RESPIRATORY DISTRESS [None]
